FAERS Safety Report 5986362-2 (Version None)
Quarter: 2008Q4

REPORT INFORMATION
  Report Type: 
  Country: None (occurrence: None)
  Receive Date: 20081209
  Receipt Date: 20081117
  Transmission Date: 20090506
  Serious: Yes (Hospitalization, Disabling)
  Sender: FDA-Public Use
  Company Number: JP-NOVOPROD-281584

PATIENT
  Age: 67 Year
  Sex: Male
  Weight: 40 kg

DRUGS (6)
  1. INNOLET 30R CHU [Suspect]
     Indication: TYPE 2 DIABETES MELLITUS
     Dosage: 21 IU, QD
     Route: 058
     Dates: end: 20080504
  2. HUMULIN N [Concomitant]
     Indication: DIABETES MELLITUS
     Dosage: 10 IU, QD
  3. ACTOS [Concomitant]
     Indication: DIABETES MELLITUS
     Dosage: 15 MG, QD
  4. ASPIRIN [Concomitant]
     Indication: DRUG USE FOR UNKNOWN INDICATION
     Dosage: 100 MG, QD
  5. GLUCOBAY [Concomitant]
     Indication: DIABETES MELLITUS
     Dosage: 300 MG, QD
  6. PLAVIX [Concomitant]
     Indication: DRUG USE FOR UNKNOWN INDICATION
     Dosage: 75 MG, QD

REACTIONS (2)
  - HYPOGLYCAEMIC COMA [None]
  - HYPOGLYCAEMIC ENCEPHALOPATHY [None]
